FAERS Safety Report 6264496-5 (Version None)
Quarter: 2009Q3

REPORT INFORMATION
  Report Type: 
  Country: None (occurrence: None)
  Receive Date: 20090708
  Receipt Date: 20090629
  Transmission Date: 20100115
  Serious: Yes (Other)
  Sender: FDA-Public Use
  Company Number: 2009070011

PATIENT
  Age: 18 Year
  Sex: Male

DRUGS (1)
  1. OTRIVINE (AZELASTINE) [Suspect]
     Indication: RHINITIS ALLERGIC
     Dosage: IN
     Dates: start: 20090501, end: 20090514

REACTIONS (2)
  - ARTHRALGIA [None]
  - MYALGIA [None]
